FAERS Safety Report 8404580-0 (Version None)
Quarter: 2012Q2

REPORT INFORMATION
  Report Type: 
  Country: None (occurrence: None)
  Receive Date: 20120601
  Receipt Date: 20120523
  Transmission Date: 20120825
  Serious: Yes (Hospitalization, Other)
  Sender: FDA-Public Use
  Company Number: US-BAXTER-2012BAX006683

PATIENT
  Sex: Female

DRUGS (2)
  1. METHYLPREDNISOLONE [Concomitant]
     Route: 048
  2. DIANEAL [Suspect]
     Indication: PERITONEAL DIALYSIS
     Route: 033

REACTIONS (3)
  - ABDOMINAL PAIN [None]
  - GASTROENTERITIS VIRAL [None]
  - HYPOTENSION [None]
